FAERS Safety Report 8554017-6 (Version None)
Quarter: 2012Q3

REPORT INFORMATION
  Report Type: 
  Country: None (occurrence: None)
  Receive Date: 20120731
  Receipt Date: 20120723
  Transmission Date: 20120928
  Serious: Yes (Hospitalization, Other)
  Sender: FDA-Public Use
  Company Number: US-CELGENEUS-163-21880-12063767

PATIENT
  Sex: Male

DRUGS (6)
  1. REVLIMID [Suspect]
     Indication: MYELODYSPLASTIC SYNDROME
     Dosage: 10 MILLIGRAM
     Route: 048
     Dates: start: 20111201
  2. WHOLE BLOOD [Concomitant]
     Route: 065
  3. ASPIRIN [Concomitant]
     Indication: CORONARY ARTERY DISEASE
     Dosage: 325 MILLIGRAM
     Route: 065
  4. POTASSIUM CHLORIDE [Concomitant]
     Route: 065
  5. LASIX [Concomitant]
     Route: 065
  6. COREG [Concomitant]
     Indication: CORONARY ARTERY DISEASE
     Dosage: 12.5 MILLIGRAM
     Route: 065

REACTIONS (3)
  - SPLENOMEGALY [None]
  - ABDOMINAL PAIN UPPER [None]
  - FIBRIN D DIMER INCREASED [None]
